FAERS Safety Report 10647576 (Version 1)
Quarter: 2014Q4

REPORT INFORMATION
  Report Type: Spontaneous
  Country: ES (occurrence: ES)
  Receive Date: 20141211
  Receipt Date: 20141211
  Transmission Date: 20150529
  Serious: Yes (Hospitalization)
  Sender: FDA-Public Use
  Company Number: ES-ALLERGAN-1424916US

PATIENT
  Age: 79 Year
  Sex: Male

DRUGS (5)
  1. XALATAN 0,005%, COLIRIO EN SOLUCION , 1 FRASCO DE 2,5 ML [Concomitant]
     Indication: GLAUCOMA
     Route: 047
     Dates: start: 20101022, end: 20141009
  2. GANFORT [Suspect]
     Active Substance: BIMATOPROST\TIMOLOL
     Indication: GLAUCOMA
     Dosage: 1 GTT, QD
     Route: 047
     Dates: start: 20141010, end: 20141106
  3. SINTROM 4 MG COMPRIMIDOS , 20 COMPRIMIDOS [Concomitant]
     Indication: ATRIAL FIBRILLATION
     Dosage: UNK
     Route: 048
     Dates: start: 20130807
  4. DIAMICRON 30 MG COMPRIMIDOS DE LIBERACION MODIFICADA, 60 COMPRIMIDOS [Concomitant]
     Indication: DIABETES MELLITUS
     Dosage: 30 MG, QD
     Route: 048
     Dates: start: 20100716
  5. CARDURAN NEO 4 MG COMPRIMIDOS DE LIBERACION MODIFICADA, 28 COMPRIMIDOS [Concomitant]
     Indication: BENIGN PROSTATIC HYPERPLASIA
     Dosage: 4 MG, QD
     Route: 048
     Dates: start: 20070817

REACTIONS (1)
  - Bradycardia [Recovered/Resolved]

NARRATIVE: CASE EVENT DATE: 20141106
